FAERS Safety Report 6157772-8 (Version None)
Quarter: 2009Q2

REPORT INFORMATION
  Report Type: 
  Country: None (occurrence: None)
  Receive Date: 20090414
  Receipt Date: 20090408
  Transmission Date: 20091009
  Serious: Yes (Death)
  Sender: FDA-Public Use
  Company Number: 2009003645

PATIENT
  Age: 18 Year
  Sex: Male

DRUGS (2)
  1. ACTIQ [Suspect]
     Indication: CANCER PAIN
     Dosage: (800 MCG,EVERY 4-8 HRS), BU
     Route: 002
     Dates: start: 20060101, end: 20070601
  2. OPIOID (OPIOIDS) [Concomitant]

REACTIONS (5)
  - INCORRECT DOSE ADMINISTERED [None]
  - OPEN WOUND [None]
  - PRURITUS [None]
  - SOMNOLENCE [None]
  - WRONG TECHNIQUE IN DRUG USAGE PROCESS [None]
